FAERS Safety Report 9543860 (Version 2)
Quarter: 2013Q3

REPORT INFORMATION
  Report Type: Spontaneous
  Country: RU (occurrence: RU)
  Receive Date: 20130923
  Receipt Date: 20130923
  Transmission Date: 20140515
  Serious: Yes (Hospitalization)
  Sender: FDA-Public Use
  Company Number: RU-MERCK-1208RUS004817

PATIENT
  Age: 36 Year
  Sex: Female

DRUGS (2)
  1. PUREGON [Suspect]
     Indication: INFERTILITY FEMALE
     Dosage: 300 IU, ONCE
     Route: 058
     Dates: start: 20120716, end: 20120716
  2. PUREGON [Suspect]
     Indication: IN VITRO FERTILISATION

REACTIONS (16)
  - Pyrexia [Recovered/Resolved]
  - Dizziness [Recovered/Resolved]
  - Tremor [Recovered/Resolved]
  - Pollakiuria [Recovered/Resolved]
  - Angioedema [Recovered/Resolved]
  - Chest pain [Recovered/Resolved]
  - Tinnitus [Recovered/Resolved]
  - Body temperature increased [Recovered/Resolved]
  - Local swelling [Recovered/Resolved]
  - Oropharyngeal discomfort [Recovered/Resolved]
  - Panic attack [Recovered/Resolved]
  - Dyspnoea [Recovered/Resolved]
  - Vomiting [Recovered/Resolved]
  - Diarrhoea [Recovered/Resolved]
  - Nausea [Recovered/Resolved]
  - Headache [Recovered/Resolved]
